FAERS Safety Report 23262921 (Version 1)
Quarter: 2023Q4

REPORT INFORMATION
  Report Type: Spontaneous
  Country: US (occurrence: US)
  Receive Date: 20231205
  Receipt Date: 20231205
  Transmission Date: 20240109
  Serious: No
  Sender: FDA-Public Use
  Company Number: US-OPELLA-2023OHG002119

PATIENT
  Sex: Male

DRUGS (1)
  1. ACT ANTICAVITY FLUORIDE FRESH MINT [Suspect]
     Active Substance: SODIUM FLUORIDE

REACTIONS (2)
  - Therapeutic product effect decreased [Unknown]
  - No adverse event [Unknown]
